FAERS Safety Report 6873101-6 (Version None)
Quarter: 2010Q3

REPORT INFORMATION
  Report Type: 
  Country: None (occurrence: None)
  Receive Date: 20100723
  Receipt Date: 20090826
  Transmission Date: 20110219
  Serious: Yes (Other)
  Sender: FDA-Public Use
  Company Number: US-PFIZER INC-2008096589

PATIENT
  Sex: Female
  Weight: 53 kg

DRUGS (1)
  1. CHANTIX [Suspect]
     Indication: SMOKING CESSATION THERAPY
     Dosage: 1 MG, 2X/DAY
     Route: 048
     Dates: start: 20080724, end: 20081010

REACTIONS (11)
  - DEPRESSION [None]
  - DIZZINESS [None]
  - FATIGUE [None]
  - FEAR [None]
  - INSOMNIA [None]
  - INTENTIONAL DRUG MISUSE [None]
  - NAUSEA [None]
  - PARANOIA [None]
  - STRESS [None]
  - SUICIDAL IDEATION [None]
  - URINE CYTOLOGY ABNORMAL [None]
